FAERS Safety Report 15120891 (Version 3)
Quarter: 2018Q3

REPORT INFORMATION
  Report Type: Spontaneous
  Country: US (occurrence: US)
  Receive Date: 20180709
  Receipt Date: 20180725
  Transmission Date: 20181010
  Serious: Yes (Hospitalization, Disabling)
  Sender: FDA-Public Use
  Company Number: US-SA-2018SA178909

PATIENT
  Age: 87 Year
  Sex: Female

DRUGS (2)
  1. ALIROCUMAB PREFILLED PEN [Suspect]
     Active Substance: ALIROCUMAB
     Indication: PRODUCT USED FOR UNKNOWN INDICATION
     Dosage: 75 MG, QOW
     Route: 058
     Dates: start: 201803, end: 20180621
  2. PRALUENT [Suspect]
     Active Substance: ALIROCUMAB
     Indication: PRODUCT USED FOR UNKNOWN INDICATION
     Dosage: 75 MG, QOW
     Route: 058
     Dates: start: 201803, end: 20180621

REACTIONS (7)
  - Nausea [Unknown]
  - Limb discomfort [Unknown]
  - Lower limb fracture [Unknown]
  - Walking aid user [Unknown]
  - Fall [Unknown]
  - Myalgia [Unknown]
  - Injection site erythema [Unknown]
